FAERS Safety Report 4275529-X (Version None)
Quarter: 2004Q1

REPORT INFORMATION
  Report Type: 
  Country: None (occurrence: None)
  Receive Date: 20040121
  Receipt Date: 20040113
  Transmission Date: 20041129
  Serious: Yes (Other)
  Sender: FDA-Public Use
  Company Number: FR-GLAXOSMITHKLINE-B0319664A

PATIENT
  Age: 57 Year
  Sex: Female

DRUGS (1)
  1. ZELITREX [Suspect]
     Indication: HERPES ZOSTER
     Dosage: 3G PER DAY
     Route: 048
     Dates: start: 20040107, end: 20040111

REACTIONS (4)
  - ECZEMA [None]
  - PRURITUS [None]
  - PRURITUS ANI [None]
  - PRURITUS GENITAL [None]
